FAERS Safety Report 7365807-X (Version None)
Quarter: 2011Q1

REPORT INFORMATION
  Report Type: 
  Country: None (occurrence: None)
  Receive Date: 20110322
  Receipt Date: 20110314
  Transmission Date: 20110831
  Serious: Yes (Other)
  Sender: FDA-Public Use
  Company Number: US-US-EMD SERONO, INC.-7047945

PATIENT
  Sex: Female

DRUGS (4)
  1. UNSPECIFIED HORMONE REPLACEMENT THERAPY [Concomitant]
  2. REBIF [Suspect]
     Indication: PRODUCT USED FOR UNKNOWN INDICATION
     Route: 058
     Dates: start: 20060817
  3. THYROID MEDICATION [Concomitant]
     Indication: THYROID DISORDER
  4. UNSPECIFIED MIGRAINE MEDICATION [Concomitant]
     Indication: MIGRAINE

REACTIONS (3)
  - GINGIVITIS [None]
  - BONE DISORDER [None]
  - RASH [None]
